FAERS Safety Report 6406094-6 (Version None)
Quarter: 2009Q4

REPORT INFORMATION
  Report Type: 
  Country: None (occurrence: None)
  Receive Date: 20091019
  Receipt Date: 20091009
  Transmission Date: 20100525
  Serious: Yes (Other)
  Sender: FDA-Public Use
  Company Number: BR-ELI_LILLY_AND_COMPANY-BR200806000508

PATIENT
  Sex: Female
  Weight: 54 kg

DRUGS (9)
  1. FORTEO [Suspect]
     Indication: OSTEOPOROSIS
     Dosage: 20 UG, DAILY (1/D)
     Route: 058
     Dates: start: 20080328
  2. ATENOLOL [Concomitant]
     Indication: CARDIAC DISORDER
     Dosage: 50 MG, 2/D
     Route: 065
  3. VERAPAMIL [Concomitant]
     Indication: CEREBROVASCULAR ACCIDENT
     Dosage: UNK, 2/D
     Route: 065
  4. CALCIUM [Concomitant]
     Indication: OSTEOPOROSIS
     Dosage: 600 MG, UNKNOWN
     Route: 065
  5. ARADOIS [Concomitant]
     Dosage: 25 MG, DAILY (1/D)
     Route: 065
  6. ANCORON [Concomitant]
     Dosage: 200 MG, 2/D
     Route: 065
  7. PLAKETAR [Concomitant]
     Indication: COAGULOPATHY
     Dosage: 250 MG, 2/D
     Route: 065
  8. SINVASTATINA [Concomitant]
     Dosage: 20 MG, DAILY (1/D)
     Route: 065
  9. FUROSEMIDE W/POTASSIUM CHLORIDE [Concomitant]
     Dosage: UNK, 3/W
     Route: 065

REACTIONS (3)
  - FALL [None]
  - PAIN IN EXTREMITY [None]
  - UPPER LIMB FRACTURE [None]
